FAERS Safety Report 9200655 (Version 1)
Quarter: 2013Q1

REPORT INFORMATION
  Report Type: Spontaneous
  Country: DE (occurrence: DE)
  Receive Date: 20130331
  Receipt Date: 20130331
  Transmission Date: 20140127
  Serious: Yes (Other)
  Sender: FDA-Public Use
  Company Number: DE-UCBSA-081475

PATIENT
  Age: 50 Year
  Sex: Female

DRUGS (2)
  1. VIMPAT [Suspect]
     Dosage: 50-0-50
     Dates: start: 201303, end: 201303
  2. TOPIRAMATE [Concomitant]
     Dosage: 150-0-150 INTRODUCED APPROX 3 YEARS AGO

REACTIONS (1)
  - Convulsion [Recovering/Resolving]
